FAERS Safety Report 5149781-2 (Version None)
Quarter: 2006Q4

REPORT INFORMATION
  Report Type: 
  Country: None (occurrence: None)
  Receive Date: 20061113
  Receipt Date: 20061025
  Transmission Date: 20070319
  Serious: Yes (Hospitalization, Other)
  Sender: FDA-Public Use
  Company Number: CH-ELI_LILLY_AND_COMPANY-CH200610005105

PATIENT
  Age: 53 Year
  Sex: Female
  Weight: 64.3 kg

DRUGS (3)
  1. GEMZAR [Suspect]
     Indication: PANCREATIC CARCINOMA
     Dosage: 1650 MG, WEEKLY (1/W)
     Route: 042
     Dates: start: 20060406, end: 20060801
  2. OMEPRAZOLE [Concomitant]
     Dosage: 20 MG, DAILY (1/D)
  3. CALCIMAGON-D3 /SCH/ [Concomitant]
     Dosage: 1 U, DAILY (1/D)

REACTIONS (6)
  - ACUTE PULMONARY OEDEMA [None]
  - CAPILLARY LEAK SYNDROME [None]
  - CARDIOMEGALY [None]
  - DYSPNOEA [None]
  - HYPERTENSION [None]
  - WEIGHT INCREASED [None]
